FAERS Safety Report 9258417 (Version 1)
Quarter: 2013Q2

REPORT INFORMATION
  Report Type: Spontaneous
  Country: US (occurrence: US)
  Receive Date: 20130426
  Receipt Date: 20130426
  Transmission Date: 20140414
  Serious: Yes (Other)
  Sender: FDA-Public Use
  Company Number: US-PFIZER INC-2013127276

PATIENT
  Sex: Male

DRUGS (4)
  1. ZITHROMAX [Suspect]
     Indication: SINUSITIS
     Dosage: 250 MG, 2X/DAY (ON FIRST DAY)
     Route: 048
     Dates: start: 2011, end: 2011
  2. ZITHROMAX [Suspect]
     Dosage: 250 MG, 1X/DAY (SECOND TO FIFTH DAY)
     Route: 048
     Dates: start: 2011, end: 2011
  3. ZITHROMAX [Suspect]
     Dosage: UNK
     Route: 048
     Dates: start: 20121217, end: 20121218
  4. ZITHROMAX [Suspect]
     Dosage: 250 MG (FOR 4 DAYS), 1X/DAY
     Route: 048
     Dates: start: 20121218, end: 20121221

REACTIONS (7)
  - Appendicitis [Recovered/Resolved]
  - Abdominal pain [Recovered/Resolved]
  - Eczema [Not Recovered/Not Resolved]
  - Erythema [Not Recovered/Not Resolved]
  - Local swelling [Not Recovered/Not Resolved]
  - Hyperhidrosis [Not Recovered/Not Resolved]
  - Inappropriate schedule of drug administration [Unknown]
